FAERS Safety Report 16857257 (Version 1)
Quarter: 2019Q3

REPORT INFORMATION
  Report Type: Spontaneous
  Country: CO (occurrence: CO)
  Receive Date: 20190926
  Receipt Date: 20190926
  Transmission Date: 20191005
  Serious: Yes (Other)
  Sender: FDA-Public Use
  Company Number: CO-009507513-1909COL013225

PATIENT
  Age: 44 Year
  Sex: Female

DRUGS (1)
  1. APREPITANT. [Suspect]
     Active Substance: APREPITANT
     Dosage: 150 MILLIGRAM
     Route: 058

REACTIONS (2)
  - Breast cancer female [Recovering/Resolving]
  - Vomiting [Recovering/Resolving]
